FAERS Safety Report 6181337-5 (Version None)
Quarter: 2009Q2

REPORT INFORMATION
  Report Type: 
  Country: None (occurrence: None)
  Receive Date: 20090506
  Receipt Date: 20090424
  Transmission Date: 20091009
  Serious: Yes (Hospitalization, Other)
  Sender: FDA-Public Use
  Company Number: US-MERCK-0901USA00890

PATIENT
  Age: 68 Year
  Sex: Female
  Weight: 70 kg

DRUGS (5)
  1. FOSAMAX [Suspect]
     Indication: OSTEOPENIA
     Route: 048
     Dates: start: 20050201, end: 20050101
  2. FOSAMAX [Suspect]
     Route: 048
     Dates: start: 20060101, end: 20070401
  3. FOSAMAX [Suspect]
     Indication: OSTEOPOROSIS
     Route: 048
     Dates: start: 20050201, end: 20050101
  4. FOSAMAX [Suspect]
     Route: 048
     Dates: start: 20060101, end: 20070401
  5. ELMIRON [Concomitant]
     Indication: CYSTITIS INTERSTITIAL
     Route: 065
     Dates: start: 19980101

REACTIONS (17)
  - ARTHROPATHY [None]
  - BACK PAIN [None]
  - BONE DISORDER [None]
  - CHRONIC SINUSITIS [None]
  - CLAVICLE FRACTURE [None]
  - FALL [None]
  - HUMERUS FRACTURE [None]
  - LACTASE DEFICIENCY [None]
  - MASS [None]
  - MYALGIA [None]
  - NASAL SEPTUM DISORDER [None]
  - NAUSEA [None]
  - OSTEOMYELITIS [None]
  - OSTEONECROSIS [None]
  - SINUS DISORDER [None]
  - SKIN CANCER [None]
  - UPPER LIMB FRACTURE [None]
